FAERS Safety Report 13472384 (Version 1)
Quarter: 2017Q2

REPORT INFORMATION
  Report Type: Spontaneous
  Country: US (occurrence: US)
  Receive Date: 20170422
  Receipt Date: 20170422
  Transmission Date: 20170830
  Serious: Yes (Other)
  Sender: FDA-Public Use
  Company Number: None

PATIENT
  Age: 61 Year
  Sex: Female
  Weight: 55.8 kg

DRUGS (19)
  1. CALCIUM [Concomitant]
     Active Substance: CALCIUM
  2. VITAMIN D3 [Concomitant]
     Active Substance: CHOLECALCIFEROL
  3. GLUCOSAMINE CHONDROITIN [Concomitant]
     Active Substance: CHONDROITIN SULFATE (BOVINE)\GLUCOSAMINE HYDROCHLORIDE
  4. XYZAL [Suspect]
     Active Substance: LEVOCETIRIZINE DIHYDROCHLORIDE
     Indication: HYPERSENSITIVITY
     Dosage: ?          QUANTITY:1 TABLET(S);?
     Route: 048
     Dates: start: 20170316, end: 20170421
  5. AZELASTINE [Concomitant]
     Active Substance: AZELASTINE
  6. GUAIFENESIN. [Concomitant]
     Active Substance: GUAIFENESIN
  7. PRESERVISION [Concomitant]
     Active Substance: MINERALS\VITAMINS
  8. PHENYLEPHRINE HCL [Concomitant]
     Active Substance: PHENYLEPHRINE HYDROCHLORIDE
  9. NASACORT [Concomitant]
     Active Substance: TRIAMCINOLONE ACETONIDE
  10. BUTESONIDE [Concomitant]
  11. VITAMIN C [Concomitant]
     Active Substance: ASCORBIC ACID
  12. VALACYCLOVIR [Concomitant]
     Active Substance: VALACYCLOVIR HYDROCHLORIDE
  13. CLONAZEPAM. [Concomitant]
     Active Substance: CLONAZEPAM
  14. MONTELUKAST SODIUM. [Concomitant]
     Active Substance: MONTELUKAST SODIUM
  15. VENTOLIN [Concomitant]
     Active Substance: ALBUTEROL SULFATE
  16. ZYRTEC [Concomitant]
     Active Substance: CETIRIZINE HYDROCHLORIDE
  17. IBUPROFEN. [Concomitant]
     Active Substance: IBUPROFEN
  18. MULTI VITAMIN [Concomitant]
     Active Substance: VITAMINS
  19. COQ10 [Concomitant]
     Active Substance: UBIDECARENONE

REACTIONS (3)
  - Somnolence [None]
  - Thirst [None]
  - Dry mouth [None]

NARRATIVE: CASE EVENT DATE: 20170421
